FAERS Safety Report 4298123-3 (Version None)
Quarter: 2004Q1

REPORT INFORMATION
  Report Type: 
  Country: None (occurrence: None)
  Receive Date: 20040218
  Receipt Date: 20030314
  Transmission Date: 20041129
  Serious: No
  Sender: FDA-Public Use
  Company Number: US-BRISTOL-MYERS SQUIBB COMPANY-12212536

PATIENT
  Age: 44 Year
  Sex: Female
  Weight: 63 kg

DRUGS (6)
  1. STADOL [Suspect]
     Indication: MIGRAINE
     Dosage: IH37595 EXPIRATION 7/31/2003 + 2L63314 EXPIRATION 12/31/2004.
     Route: 045
  2. HYDROCODONE + ACETAMINOPHEN [Concomitant]
  3. WELLBUTRIN SR [Concomitant]
  4. IMITREX [Concomitant]
  5. PAXIL [Concomitant]
  6. TIGAN [Concomitant]

REACTIONS (1)
  - DRUG INEFFECTIVE [None]
